FAERS Safety Report 24865078 (Version 2)
Quarter: 2025Q1

REPORT INFORMATION
  Report Type: Report from Study
  Country: CA (occurrence: CA)
  Receive Date: 20250121
  Receipt Date: 20250129
  Transmission Date: 20250408
  Serious: Yes (Other)
  Sender: REGENERON
  Company Number: CA-BAYER-2025A008038

PATIENT

DRUGS (2)
  1. EYLEA [Suspect]
     Active Substance: AFLIBERCEPT
     Indication: Ocular cyst
     Dates: start: 20240214
  2. EYLEA [Suspect]
     Active Substance: AFLIBERCEPT
     Indication: Diabetic retinal oedema
     Dates: start: 202501, end: 202501

REACTIONS (6)
  - Vitrectomy [Unknown]
  - Laser therapy [Unknown]
  - Cataract operation [Unknown]
  - Ocular cyst [Unknown]
  - Eye operation [Unknown]
  - Product use in unapproved indication [Unknown]

NARRATIVE: CASE EVENT DATE: 20241101
